FAERS Safety Report 14416618 (Version 6)
Quarter: 2019Q2

REPORT INFORMATION
  Report Type: Report from Study
  Country: US (occurrence: US)
  Receive Date: 20180122
  Receipt Date: 20190411
  Transmission Date: 20190711
  Serious: Yes (Hospitalization)
  Sender: FDA-Public Use
  Company Number: US-ACTELION-A-NJ2018-165833

PATIENT
  Age: 76 Year
  Sex: Female

DRUGS (12)
  1. METOPROLOL. [Concomitant]
     Active Substance: METOPROLOL
  2. ADEMPAS [Suspect]
     Active Substance: RIOCIGUAT
     Indication: PRODUCT USED FOR UNKNOWN INDICATION
     Route: 065
  3. ELIQUIS [Concomitant]
     Active Substance: APIXABAN
  4. BREO ELLIPTA [Concomitant]
     Active Substance: FLUTICASONE FUROATE\VILANTEROL TRIFENATATE
  5. FUROSEMIDE. [Concomitant]
     Active Substance: FUROSEMIDE
  6. TRAZODONE [Concomitant]
     Active Substance: TRAZODONE HYDROCHLORIDE
  7. POTASSIUM CHLORIDE. [Concomitant]
     Active Substance: POTASSIUM CHLORIDE
  8. MAGNESIUM OXIDE. [Concomitant]
     Active Substance: MAGNESIUM OXIDE
  9. FENOFIBRATE. [Concomitant]
     Active Substance: FENOFIBRATE
  10. OPSUMIT [Suspect]
     Active Substance: MACITENTAN
     Indication: PULMONARY ARTERIAL HYPERTENSION
     Dosage: 10 MG, QD
     Route: 048
     Dates: start: 20170922
  11. ALPRAZOLAM. [Concomitant]
     Active Substance: ALPRAZOLAM
  12. METFORMIN [Concomitant]
     Active Substance: METFORMIN HYDROCHLORIDE

REACTIONS (6)
  - Headache [Unknown]
  - Pulmonary embolism [Unknown]
  - Bronchitis [Unknown]
  - Swelling of eyelid [Unknown]
  - Product quality issue [Unknown]
  - Diarrhoea [Unknown]

NARRATIVE: CASE EVENT DATE: 20181201
